FAERS Safety Report 24104013 (Version 2)
Quarter: 2024Q4

REPORT INFORMATION
  Report Type: Report from Study
  Country: NZ (occurrence: NZ)
  Receive Date: 20240717
  Receipt Date: 20241025
  Transmission Date: 20250114
  Serious: Yes (Hospitalization)
  Sender: BAXTER
  Company Number: NZ-BAXTER-2023BAX032142

PATIENT
  Age: 65 Year
  Sex: Female
  Weight: 55.6 kg

DRUGS (28)
  1. DOXORUBICIN [Suspect]
     Active Substance: DOXORUBICIN
     Indication: Diffuse large B-cell lymphoma stage II
     Dosage: 80 MG, EVERY 3 WEEKS, ONGOING
     Route: 042
     Dates: start: 20230713
  2. CYCLOPHOSPHAMIDE [Suspect]
     Active Substance: CYCLOPHOSPHAMIDE
     Indication: Diffuse large B-cell lymphoma stage II
     Dosage: 1200 MG, EVERY 3 WEEKS, ONGOING
     Route: 042
     Dates: start: 20230713
  3. EPCORITAMAB [Suspect]
     Active Substance: EPCORITAMAB
     Indication: Diffuse large B-cell lymphoma stage II
     Dosage: 48 MG C1 (STEP-UP), CYCLES 2 - 4 (21-DAY CYCLE, WEEKLY DOSE), C5 - 8 (21-DAY CYCLE, EVERY 3 WEEKS) P
     Route: 058
     Dates: start: 20230713
  4. VINCRISTINE [Suspect]
     Active Substance: VINCRISTINE
     Indication: Diffuse large B-cell lymphoma stage II
     Dosage: 2 MG, EVERY 3 WEEKS, ONGOING
     Route: 042
     Dates: start: 20230713
  5. RITUXIMAB [Suspect]
     Active Substance: RITUXIMAB
     Indication: Diffuse large B-cell lymphoma stage II
     Dosage: 600 MG, EVERY 3 WEEKS, ONGOING
     Route: 042
     Dates: start: 20230713
  6. PREDNISONE [Suspect]
     Active Substance: PREDNISONE
     Indication: Diffuse large B-cell lymphoma stage II
     Dosage: 100 MG DAILY C1-6, DAY 1-5, EVERY 1 DAYS, ONGOING
     Route: 048
     Dates: start: 20230713
  7. METOPROLOL [Concomitant]
     Active Substance: METOPROLOL
     Indication: Hypertension
     Dosage: 23.75 MG, EVERY 1 DAYS
     Route: 065
     Dates: start: 20230628
  8. ATORVASTATIN [Concomitant]
     Active Substance: ATORVASTATIN
     Indication: Hyperlipidaemia
     Dosage: 10 MG, EVERY 1 DAYS
     Route: 065
     Dates: start: 20170610
  9. CITALOPRAM [Concomitant]
     Active Substance: CITALOPRAM
     Indication: Depression
     Dosage: 20 MG, EVERY 1 DAYS
     Route: 065
     Dates: start: 20110628
  10. CITALOPRAM [Concomitant]
     Active Substance: CITALOPRAM
     Indication: Anxiety
  11. AMITRIPTYLINE [Concomitant]
     Active Substance: AMITRIPTYLINE
     Indication: Depression
     Dosage: 10 MG, 4/DAYS
     Route: 065
     Dates: start: 20110428
  12. AMITRIPTYLINE [Concomitant]
     Active Substance: AMITRIPTYLINE
     Indication: Anxiety
  13. ACETAMINOPHEN [Concomitant]
     Active Substance: ACETAMINOPHEN
     Indication: Prophylaxis
     Dosage: 1000 MG, EVERY 3 WEEKS
     Route: 065
     Dates: start: 20230713
  14. LORATADINE [Concomitant]
     Active Substance: LORATADINE
     Indication: Antiallergic therapy
     Dosage: 10 MG, EVERY 3 WEEKS
     Route: 065
     Dates: start: 20230713
  15. ALLOPURINOL [Concomitant]
     Active Substance: ALLOPURINOL
     Indication: Prophylaxis
     Dosage: 300 MG, 4/DAYS
     Route: 065
     Dates: start: 20230713
  16. VALACYCLOVIR [Concomitant]
     Active Substance: VALACYCLOVIR HYDROCHLORIDE
     Indication: Antiviral prophylaxis
     Dosage: 500 MG, 4/DAYS
     Route: 065
     Dates: start: 20230713
  17. COTRIMOXAZOLE [Concomitant]
     Active Substance: SULFAMETHOXAZOLE\TRIMETHOPRIM
     Indication: Prophylaxis
     Dosage: 960 MG, 3/WEEKS
     Route: 065
     Dates: start: 20230714
  18. AMLODIPINE [Concomitant]
     Active Substance: AMLODIPINE BESYLATE
     Indication: Hypertension
     Dosage: 2.5 MG, 4/DAYS
     Route: 065
     Dates: start: 20230714
  19. OMEPRAZOLE [Concomitant]
     Active Substance: OMEPRAZOLE
     Indication: Prophylaxis
     Dosage: 20 MG, EVERY 1 DAYS
     Dates: start: 20230715
  20. CEFUROXIME [Concomitant]
     Active Substance: CEFUROXIME
     Indication: Prophylaxis
     Dosage: 1.5 MG, EVERY 8 HOURS
     Route: 065
     Dates: start: 20230921
  21. CEFUROXIME [Concomitant]
     Active Substance: CEFUROXIME
     Indication: Infection prophylaxis
  22. EMEND [Concomitant]
     Active Substance: APREPITANT
     Indication: Prophylaxis of nausea and vomiting
     Dosage: 125 MG DAY 1 80 MG DAY 2,3, EVERY 2 DAYS
     Route: 065
     Dates: start: 20230824
  23. Laxol [Concomitant]
     Indication: Constipation
     Dosage: 2 DOSAGE FORM, 2/DAYS
     Route: 065
     Dates: start: 20230729
  24. POLYETHYLENE GLYCOL 3350\POTASSIUM CHLORIDE\SODIUM BICARBONATE\SODIUM [Concomitant]
     Active Substance: POLYETHYLENE GLYCOL 3350\POTASSIUM CHLORIDE\SODIUM BICARBONATE\SODIUM CHLORIDE
     Indication: Constipation
     Dosage: 3 SACHET, AS NECESSARY
     Route: 065
     Dates: start: 20230729
  25. METOCLOPRAMIDE [Concomitant]
     Active Substance: METOCLOPRAMIDE
     Indication: Nausea
     Dosage: 10 MG, EVERY 4 HOURS
     Route: 065
     Dates: start: 20230714
  26. ONDANSETRON [Concomitant]
     Active Substance: ONDANSETRON
     Indication: Vomiting
     Dosage: 8 MG, TOTAL
     Route: 065
     Dates: start: 20230714
  27. ONDANSETRON [Concomitant]
     Active Substance: ONDANSETRON
     Indication: Nausea
     Dosage: 8 MG, AS NECESSARY
     Route: 065
     Dates: start: 20230804
  28. PROCHLORPERAZINE [Concomitant]
     Active Substance: PROCHLORPERAZINE
     Indication: Nausea
     Dosage: 5 MG, AS NECESSARY
     Route: 065
     Dates: start: 20230720

REACTIONS (2)
  - Dehydration [Recovered/Resolved]
  - Hypotension [Recovered/Resolved]

NARRATIVE: CASE EVENT DATE: 20230920
